FAERS Safety Report 18769431 (Version 1)
Quarter: 2021Q1

REPORT INFORMATION
  Report Type: Report from Study
  Country: GT (occurrence: GT)
  Receive Date: 20210121
  Receipt Date: 20210121
  Transmission Date: 20210419
  Serious: Yes (Other)
  Sender: FDA-Public Use
  Company Number: NVSC2021GT011598

PATIENT
  Sex: Female

DRUGS (1)
  1. FINGOLIMOD. [Suspect]
     Active Substance: FINGOLIMOD
     Indication: MULTIPLE SCLEROSIS
     Dosage: 0.5 MG (VIA MOUTH)
     Route: 048
     Dates: start: 20180625

REACTIONS (3)
  - Spinal cord injury thoracic [Unknown]
  - Malaise [Unknown]
  - Spinal cord injury cervical [Unknown]
